FAERS Safety Report 4378659-7 (Version None)
Quarter: 2004Q2

REPORT INFORMATION
  Report Type: 
  Country: None (occurrence: None)
  Receive Date: 20040610
  Receipt Date: 20040527
  Transmission Date: 20050107
  Serious: Yes (Hospitalization, Disabling)
  Sender: FDA-Public Use
  Company Number: 2004-BP-04239BR

PATIENT
  Sex: Female

DRUGS (4)
  1. ATENSINA (CLONIDINE) (TA) [Suspect]
     Indication: HYPERTENSION
     Dosage: 0.2 MG (NR, 0.2 MG OAD)
     Route: 048
     Dates: start: 19980101
  2. NIFEDIPINE [Suspect]
     Indication: HYPERTENSION
     Route: 048
  3. FUROSEMIDE [Concomitant]
  4. PURAN T4 (LEVOTHYROXINE SODIUM) (NR) [Concomitant]

REACTIONS (3)
  - BLOOD PRESSURE INCREASED [None]
  - CEREBROVASCULAR ACCIDENT [None]
  - DRUG INEFFECTIVE [None]
